FAERS Safety Report 4350771-8 (Version None)
Quarter: 2004Q2

REPORT INFORMATION
  Report Type: 
  Country: None (occurrence: None)
  Receive Date: 20040427
  Receipt Date: 20040419
  Transmission Date: 20050107
  Serious: Yes (Hospitalization)
  Sender: FDA-Public Use
  Company Number: HQWYE637908MAR04

PATIENT
  Age: 29 Year
  Sex: Female
  Weight: 54.48 kg

DRUGS (11)
  1. EFFEXOR XR [Suspect]
     Indication: DEPRESSION
     Dosage: SEE IMAGE
     Route: 048
     Dates: end: 20040220
  2. EFFEXOR XR [Suspect]
     Indication: SUICIDAL IDEATION
     Dosage: SEE IMAGE
     Route: 048
     Dates: end: 20040220
  3. EFFEXOR XR [Suspect]
     Indication: DEPRESSION
     Dosage: SEE IMAGE
     Route: 048
  4. EFFEXOR XR [Suspect]
     Indication: SUICIDAL IDEATION
     Dosage: SEE IMAGE
     Route: 048
  5. EFFEXOR XR [Suspect]
     Indication: DEPRESSION
     Dosage: SEE IMAGE
     Route: 048
  6. EFFEXOR XR [Suspect]
     Indication: SUICIDAL IDEATION
     Dosage: SEE IMAGE
     Route: 048
  7. EFFEXOR XR [Suspect]
     Indication: DEPRESSION
     Dosage: SEE IMAGE
     Route: 048
     Dates: start: 20020201
  8. EFFEXOR XR [Suspect]
     Indication: SUICIDAL IDEATION
     Dosage: SEE IMAGE
     Route: 048
     Dates: start: 20020201
  9. SYNTHROID [Concomitant]
  10. DANAZOL [Concomitant]
  11. PREVACID [Concomitant]

REACTIONS (6)
  - DRUG WITHDRAWAL SYNDROME [None]
  - FEELING ABNORMAL [None]
  - IMPAIRED DRIVING ABILITY [None]
  - IMPAIRED WORK ABILITY [None]
  - INSOMNIA [None]
  - SOMNOLENCE [None]
